FAERS Safety Report 8777608 (Version 1)
Quarter: 2012Q4

REPORT INFORMATION
  Report Type: 
  Country: US (occurrence: US)
  Receive Date: 20120910
  Receipt Date: 20120910
  Transmission Date: 20130627
  Serious: No
  Sender: FDA-Public Use
  Company Number: US-PFIZER INC-2012221124

PATIENT
  Age: 22 Year
  Sex: Female
  Weight: 63.49 kg

DRUGS (10)
  1. LYRICA [Suspect]
     Indication: FIBROMYALGIA
     Dosage: 75 mg, 2x/day
     Dates: start: 2012
  2. LYRICA [Suspect]
     Dosage: (75mg in morning and 150mg at night), 2x/day
     Dates: start: 2012, end: 2012
  3. LYRICA [Suspect]
     Dosage: 150 mg, 2x/day
     Dates: start: 201208
  4. AMBIEN [Suspect]
     Dosage: 10 mg (daily at night), 1x/day
  5. ELMIRON [Concomitant]
     Dosage: 100 mg, 3x/day
  6. PRISTIQ [Concomitant]
     Dosage: 50 mg, daily
  7. BACLOFEN [Concomitant]
     Dosage: 10 mg, 3x/day
  8. ATARAX [Concomitant]
     Dosage: 25 mg, daily
  9. NOR-QD [Concomitant]
     Indication: CONTRACEPTION
     Dosage: UNK, daily
  10. MINOCYCLINE [Concomitant]
     Dosage: 50 mg, daily

REACTIONS (3)
  - Dizziness [Not Recovered/Not Resolved]
  - Increased appetite [Unknown]
  - Weight increased [Unknown]
